FAERS Safety Report 7427523-5 (Version None)
Quarter: 2011Q2

REPORT INFORMATION
  Report Type: 
  Country: None (occurrence: None)
  Receive Date: 20110420
  Receipt Date: 20110413
  Transmission Date: 20111010
  Serious: Yes (Death)
  Sender: FDA-Public Use
  Company Number: GXBR2011US01457

PATIENT
  Sex: Female

DRUGS (1)
  1. OMNITROPE [Suspect]
     Dosage: 1.5 MG, QD

REACTIONS (1)
  - DEATH [None]
